FAERS Safety Report 6900779-0 (Version None)
Quarter: 2010Q3

REPORT INFORMATION
  Report Type: 
  Country: None (occurrence: None)
  Receive Date: 20100803
  Receipt Date: 20100726
  Transmission Date: 20110219
  Serious: Yes (Hospitalization)
  Sender: FDA-Public Use
  Company Number: IT-SANOFI-AVENTIS-2010SA043492

PATIENT
  Age: 89 Year
  Sex: Female

DRUGS (7)
  1. LASIX [Suspect]
     Indication: HYPERTENSIVE CARDIOMYOPATHY
     Route: 048
     Dates: start: 20090707, end: 20100707
  2. CORDARONE [Suspect]
     Indication: HYPERTENSIVE CARDIOMYOPATHY
     Route: 048
     Dates: start: 20100601, end: 20100630
  3. TICLOPIDINE HCL [Suspect]
     Indication: HYPERTENSIVE CARDIOMYOPATHY
     Route: 048
     Dates: start: 20090701, end: 20100707
  4. BISOPROLOL [Suspect]
     Indication: HYPERTENSIVE CARDIOMYOPATHY
     Route: 048
     Dates: start: 20090701, end: 20100707
  5. PANTORC [Suspect]
     Indication: PROPHYLAXIS AGAINST GASTROINTESTINAL ULCER
     Route: 048
     Dates: start: 20090701, end: 20100707
  6. LUVION [Suspect]
     Indication: HYPERTENSIVE CARDIOMYOPATHY
     Route: 048
     Dates: start: 20090701, end: 20100707
  7. NITRODERM [Suspect]
     Indication: HYPERTENSIVE CARDIOMYOPATHY
     Route: 062
     Dates: start: 20090701, end: 20100707

REACTIONS (4)
  - DERMATITIS BULLOUS [None]
  - ERYTHEMA [None]
  - SKIN DISORDER [None]
  - STEVENS-JOHNSON SYNDROME [None]
